FAERS Safety Report 9146797 (Version 1)
Quarter: 2013Q1

REPORT INFORMATION
  Report Type: Spontaneous
  Country: JP (occurrence: None)
  Receive Date: 20130221
  Receipt Date: 20130221
  Transmission Date: 20140127
  Serious: Yes (Death, Hospitalization, Other)
  Sender: FDA-Public Use
  Company Number: ADR-2013-00284

PATIENT
  Sex: Male

DRUGS (1)
  1. GABALON INTRATHECAL [Suspect]
     Dosage: 85  MCG/DAY

REACTIONS (1)
  - Death [None]
